FAERS Safety Report 9367110 (Version 2)
Quarter: 2013Q3

REPORT INFORMATION
  Report Type: Spontaneous
  Country: ES (occurrence: ES)
  Receive Date: 20130625
  Receipt Date: 20130711
  Transmission Date: 20140515
  Serious: Yes (Hospitalization)
  Sender: FDA-Public Use
  Company Number: ES-JNJFOC-20130608541

PATIENT
  Age: 71 Year
  Sex: Male

DRUGS (1)
  1. USTEKINUMAB [Suspect]
     Indication: PSORIASIS
     Route: 058
     Dates: start: 201104

REACTIONS (3)
  - Acute respiratory failure [Recovering/Resolving]
  - Bronchopulmonary aspergillosis [Recovering/Resolving]
  - Ophthalmic herpes simplex [Unknown]
